FAERS Safety Report 9194373 (Version 1)
Quarter: 2013Q1

REPORT INFORMATION
  Report Type: Spontaneous
  Country: US (occurrence: US)
  Receive Date: 20130327
  Receipt Date: 20130327
  Transmission Date: 20140127
  Serious: No
  Sender: FDA-Public Use
  Company Number: US-ALLERGAN-1102284US

PATIENT
  Sex: Female

DRUGS (3)
  1. LATISSE 0.03% [Suspect]
     Indication: GROWTH OF EYELASHES
     Dosage: 1 GTT, QHS
     Dates: start: 200910, end: 201010
  2. LATISSE 0.03% [Suspect]
     Dosage: 1 GTT, PRN
     Dates: start: 201010
  3. LATISSE 0.03% [Suspect]
     Dosage: 1 GTT, QHS
     Route: 050
     Dates: start: 20120212

REACTIONS (4)
  - Inappropriate schedule of drug administration [Unknown]
  - Drug ineffective [Unknown]
  - Drug ineffective [Unknown]
  - Madarosis [Unknown]
